FAERS Safety Report 7834221-2 (Version None)
Quarter: 2011Q4

REPORT INFORMATION
  Report Type: 
  Country: None (occurrence: None)
  Receive Date: 20111024
  Receipt Date: 20111017
  Transmission Date: 20120403
  Serious: Yes (Death)
  Sender: FDA-Public Use
  Company Number: PHHY2010NL86756

PATIENT
  Sex: Female
  Weight: 66 kg

DRUGS (11)
  1. OMEPRAZOLE [Concomitant]
     Dosage: 1X20
  2. OXYCODONE HCL [Concomitant]
     Dosage: 6X5 PER 24H
  3. DURAGESIC-100 [Concomitant]
     Dosage: 50
  4. DICLOFENAC [Concomitant]
     Dosage: 3X50
  5. SANDOSTATIN LAR [Suspect]
     Indication: PANCREATIC NEUROENDOCRINE TUMOUR
     Dosage: 30 MG, QMO
     Route: 030
     Dates: start: 20100102
  6. NIFEDIPINE [Concomitant]
     Dosage: 1X30
  7. PERSANTIN [Concomitant]
     Dosage: 25/200 TWICE DAILY
  8. EFFEXOR [Concomitant]
     Dosage: 37.5, QD
  9. SANDOSTATIN LAR [Suspect]
     Dosage: 30 MG, ONCE PER 4 WEEKS
     Route: 030
     Dates: start: 20100306
  10. SIMVASTATIN [Concomitant]
     Dosage: 1X40
  11. SANDOSTATIN LAR [Suspect]
     Dosage: 30 MG, ONCE PER 4 WEEKS
     Route: 030
     Dates: start: 20100406, end: 20100406

REACTIONS (1)
  - DEATH [None]
